FAERS Safety Report 25678499 (Version 1)
Quarter: 2025Q3

REPORT INFORMATION
  Report Type: Report from Study
  Country: PR (occurrence: PR)
  Receive Date: 20250813
  Receipt Date: 20250813
  Transmission Date: 20251020
  Serious: Yes (Other)
  Sender: ABBVIE
  Company Number: PR-ABBVIE-6414580

PATIENT
  Age: 20 Year
  Sex: Female

DRUGS (1)
  1. HUMIRA [Suspect]
     Active Substance: ADALIMUMAB
     Indication: Crohn^s disease
     Route: 058
     Dates: start: 2017, end: 2019

REACTIONS (7)
  - Fistula [Recovered/Resolved]
  - Fistula [Recovered/Resolved]
  - Injection site haemorrhage [Recovered/Resolved]
  - Injection site pain [Unknown]
  - Pyrexia [Unknown]
  - Presyncope [Unknown]
  - Injection site injury [Unknown]

NARRATIVE: CASE EVENT DATE: 20170101
